FAERS Safety Report 7457769-1 (Version None)
Quarter: 2011Q2

REPORT INFORMATION
  Report Type: 
  Country: None (occurrence: None)
  Receive Date: 20110502
  Receipt Date: 20110502
  Transmission Date: 20111010
  Serious: No
  Sender: FDA-Public Use
  Company Number: None

PATIENT
  Sex: Female

DRUGS (1)
  1. COPAXONE [Suspect]
     Indication: MULTIPLE SCLEROSIS
     Dosage: 20MG QD SUBCUTANEOUSLY
     Route: 058
     Dates: start: 20090819, end: 20110401

REACTIONS (4)
  - ERYTHEMA [None]
  - DYSPNOEA [None]
  - MYALGIA [None]
  - URTICARIA [None]
